FAERS Safety Report 15248317 (Version 2)
Quarter: 2018Q3

REPORT INFORMATION
  Report Type: Report from Study
  Country: US (occurrence: US)
  Receive Date: 20180807
  Receipt Date: 20180824
  Transmission Date: 20181010
  Serious: Yes (Hospitalization, Other)
  Sender: FDA-Public Use
  Company Number: US-AMGEN-USASL2018077214

PATIENT
  Sex: Female

DRUGS (1)
  1. REPATHA [Suspect]
     Active Substance: EVOLOCUMAB
     Indication: BLOOD CHOLESTEROL INCREASED
     Dosage: 140 MG, Q2WK
     Route: 065

REACTIONS (14)
  - Spinal osteoarthritis [Unknown]
  - Hepatic enzyme increased [Unknown]
  - Respiratory symptom [Unknown]
  - Feeling abnormal [Unknown]
  - Muscle spasms [Unknown]
  - Arterial occlusive disease [Unknown]
  - Pain [Unknown]
  - Rhinorrhoea [Unknown]
  - Myalgia [Unknown]
  - Irritability [Unknown]
  - Fatigue [Unknown]
  - Nausea [Unknown]
  - Muscular weakness [Unknown]
  - Blood cholesterol increased [Unknown]
